FAERS Safety Report 8384074-1 (Version None)
Quarter: 2012Q2

REPORT INFORMATION
  Report Type: 
  Country: None (occurrence: None)
  Receive Date: 20120524
  Receipt Date: 20120521
  Transmission Date: 20120825
  Serious: Yes (Hospitalization)
  Sender: FDA-Public Use
  Company Number: US-ROCHE-1071284

PATIENT
  Sex: Female

DRUGS (3)
  1. TELAPREVIR [Suspect]
     Indication: HEPATITIS C
     Dates: start: 20120319
  2. RIBAVIRIN [Suspect]
     Indication: HEPATITIS C
     Route: 048
     Dates: start: 20120319
  3. PEGASYS [Suspect]
     Indication: HEPATITIS C
     Route: 058
     Dates: start: 20120319

REACTIONS (9)
  - MYALGIA [None]
  - MUSCULOSKELETAL STIFFNESS [None]
  - THROAT IRRITATION [None]
  - ANAEMIA [None]
  - VERTIGO [None]
  - ARTHRALGIA [None]
  - RASH [None]
  - PRURITUS [None]
  - LOSS OF CONSCIOUSNESS [None]
